FAERS Safety Report 7912513-6 (Version None)
Quarter: 2011Q4

REPORT INFORMATION
  Report Type: 
  Country: None (occurrence: None)
  Receive Date: 20111114
  Receipt Date: 20111111
  Transmission Date: 20120403
  Serious: No
  Sender: FDA-Public Use
  Company Number: US-PFIZER INC-2011277315

PATIENT
  Sex: Female
  Weight: 72.6 kg

DRUGS (4)
  1. ETODOLAC [Concomitant]
     Indication: INFLAMMATION
     Dosage: 400 MG, 2X/DAY
  2. LYRICA [Suspect]
     Indication: NEUROPATHY PERIPHERAL
     Dosage: 50 MG, 2X/DAY
     Route: 048
     Dates: start: 20111001, end: 20110101
  3. BENICAR [Concomitant]
     Indication: HYPERTENSION
     Dosage: UNK
  4. FOSAMAX [Concomitant]
     Indication: PROPHYLAXIS
     Dosage: UNKNOWN DOSE ONCE A WEEK

REACTIONS (1)
  - ALOPECIA [None]
